FAERS Safety Report 6404188-2 (Version None)
Quarter: 2009Q4

REPORT INFORMATION
  Report Type: 
  Country: None (occurrence: None)
  Receive Date: 20091016
  Receipt Date: 20091007
  Transmission Date: 20100525
  Serious: Yes (Death, Life-Threatening, Hospitalization)
  Sender: FDA-Public Use
  Company Number: DE-JNJFOC-20081102794

PATIENT
  Age: 21 Year
  Sex: Female

DRUGS (4)
  1. REMICADE [Suspect]
     Indication: COLITIS ULCERATIVE
     Route: 042
  2. PREDNISOLONE [Suspect]
     Indication: DRUG USE FOR UNKNOWN INDICATION
  3. AZATHIOPRIN [Concomitant]
     Indication: COLITIS ULCERATIVE
  4. MESALAZINE [Concomitant]

REACTIONS (10)
  - ADRENAL ATROPHY [None]
  - BRONCHOPNEUMONIA [None]
  - ENCEPHALITIS [None]
  - LOCKED-IN SYNDROME [None]
  - PULMONARY OEDEMA [None]
  - RENAL FAILURE [None]
  - SHIFT TO THE LEFT [None]
  - SPLEEN CONGESTION [None]
  - TRACHEAL ULCER [None]
  - VASCULITIS CEREBRAL [None]
